FAERS Safety Report 9238222 (Version 2)
Quarter: 2013Q2

REPORT INFORMATION
  Report Type: Report from Study
  Country: BR (occurrence: BR)
  Receive Date: 20130418
  Receipt Date: 20130620
  Transmission Date: 20140414
  Serious: Yes (Other)
  Sender: FDA-Public Use
  Company Number: PHHY2013BR037451

PATIENT
  Sex: Female

DRUGS (3)
  1. FORASEQ [Suspect]
     Indication: ASTHMA
     Dosage: 2 DF, EVERY 12 HOURS
     Dates: end: 201106
  2. FORASEQ [Suspect]
     Dosage: UNK UKN, UNK
     Dates: start: 201206
  3. BEROTEC [Concomitant]
     Indication: ASTHMA
     Dosage: UNK UKN, PRN

REACTIONS (4)
  - Thrombosis [Recovering/Resolving]
  - Exposure during pregnancy [Unknown]
  - Asthmatic crisis [Recovering/Resolving]
  - Normal newborn [Unknown]
